FAERS Safety Report 6739125-4 (Version None)
Quarter: 2010Q2

REPORT INFORMATION
  Report Type: 
  Country: None (occurrence: None)
  Receive Date: 20100525
  Receipt Date: 20100517
  Transmission Date: 20101027
  Serious: No
  Sender: FDA-Public Use
  Company Number: US-BIOGENIDEC-2010BI016621

PATIENT
  Sex: Female

DRUGS (1)
  1. TYSABRI [Suspect]
     Indication: MULTIPLE SCLEROSIS
     Route: 042
     Dates: start: 20080320

REACTIONS (5)
  - BACK PAIN [None]
  - INTERVERTEBRAL DISC PROTRUSION [None]
  - MUSCLE CONTRACTIONS INVOLUNTARY [None]
  - NEPHROLITHIASIS [None]
  - POLYCYSTIC OVARIES [None]
